FAERS Safety Report 12439956 (Version 2)
Quarter: 2016Q2

REPORT INFORMATION
  Report Type: Spontaneous
  Country: DE (occurrence: DE)
  Receive Date: 20160606
  Receipt Date: 20160613
  Transmission Date: 20160815
  Serious: Yes (Hospitalization)
  Sender: FDA-Public Use
  Company Number: PHHY2016DE076505

PATIENT
  Sex: Female

DRUGS (4)
  1. TEGRETAL [Suspect]
     Active Substance: CARBAMAZEPINE
     Indication: TRIGEMINAL NERVE DISORDER
     Dosage: 100 MG, QD
     Route: 065
     Dates: start: 2011
  2. LYRICA [Concomitant]
     Active Substance: PREGABALIN
     Indication: PRODUCT USED FOR UNKNOWN INDICATION
     Route: 065
  3. BONVIVA [Concomitant]
     Active Substance: IBANDRONATE SODIUM
     Indication: PRODUCT USED FOR UNKNOWN INDICATION
     Route: 065
  4. TEGRETAL [Suspect]
     Active Substance: CARBAMAZEPINE
     Dosage: 1200 MG, QD
     Route: 065
     Dates: end: 2016

REACTIONS (7)
  - Toxicity to various agents [Unknown]
  - Malaise [Unknown]
  - Product use issue [Unknown]
  - Overdose [Unknown]
  - Headache [Unknown]
  - Rash [Recovered/Resolved]
  - Alopecia [Unknown]
